FAERS Safety Report 9034599 (Version 1)
Quarter: 2013Q1

REPORT INFORMATION
  Report Type: Spontaneous
  Country: GB (occurrence: None)
  Receive Date: 20130111
  Receipt Date: 20130111
  Transmission Date: 20140127
  Serious: Yes (Other)
  Sender: FDA-Public Use
  Company Number: AUR-APL-2013-00064

PATIENT
  Age: 78 Year
  Sex: Female
  Weight: 55 kg

DRUGS (9)
  1. AMOXICILLIN+CLAVULANIC ACID(AMOXICILLIN, CLAVULANIC ACID) [Suspect]
     Indication: PRODUCT USED FOR UNKNOWN INDICATION
     Dates: start: 20121220
  2. AMOXICILLIN (AMOXICILLIN) [Concomitant]
  3. BENDROFLUMETHIAZIDE (BENDROFLUMETHIAZIDE) [Concomitant]
  4. DOXYCYCLINE (DOXYCYCLINE) [Concomitant]
  5. FLUTICASONE (FLUTICASONE) [Concomitant]
  6. NYSTAN (NYSTATIN) [Concomitant]
  7. PREDNISOLONE (PREDNISOLONE) [Concomitant]
  8. TIOTROPIUM (TIOTROPIUM) [Concomitant]
  9. VENTOLIN (SALBUTAMOL) [Concomitant]

REACTIONS (2)
  - Pruritus generalised [None]
  - Dyspnoea [None]
